FAERS Safety Report 6323431 (Version 3)
Quarter: 2013Q2

REPORT INFORMATION
  Report Type: Spontaneous
  Country: US (occurrence: None)
  Receive Date: 20070518
  Receipt Date: 20130619
  Transmission Date: 20140414
  Serious: Yes (Other)
  Sender: FDA-Public Use
  Company Number: JPI-P-001209

PATIENT
  Age: 57 Year
  Sex: Female
  Weight: 58.97 kg

DRUGS (4)
  1. XYREM [Suspect]
     Indication: SLEEP DISORDER
     Dosage: 5 GM (2.5 GM, 2 IN 1 D), ORAL
     Route: 048
     Dates: start: 200703, end: 20070501
  2. XYREM [Suspect]
     Indication: FIBROMYALGIA
     Dosage: 5 GM (2.5 GM, 2 IN 1 D), ORAL
     Route: 048
     Dates: start: 200703, end: 20070501
  3. XYREM [Suspect]
     Indication: CHRONIC FATIGUE SYNDROME
     Dosage: 5 GM (2.5 GM, 2 IN 1 D), ORAL
     Route: 048
     Dates: start: 200703, end: 20070501
  4. FENTANYL PATCH [Suspect]
     Indication: BACK PAIN
     Dosage: STOPPED

REACTIONS (15)
  - LOSS OF CONSCIOUSNESS [None]
  - BREAST INJURY [None]
  - BACK INJURY [None]
  - MUSCLE SPASMS [None]
  - PAIN [None]
  - HYPOAESTHESIA [None]
  - FIBROMYALGIA [None]
  - CONDITION AGGRAVATED [None]
  - Road traffic accident [None]
  - Alopecia [None]
  - Hypoaesthesia [None]
  - Neuralgia [None]
  - Back pain [None]
  - Dry skin [None]
  - FALL [None]
